FAERS Safety Report 9383988 (Version 1)
Quarter: 2013Q3

REPORT INFORMATION
  Report Type: Spontaneous
  Country: ES (occurrence: ES)
  Receive Date: 20130705
  Receipt Date: 20130705
  Transmission Date: 20140515
  Serious: Yes (Other)
  Sender: FDA-Public Use
  Company Number: ES-JNJFOC-20130700971

PATIENT
  Sex: Female

DRUGS (3)
  1. DOXORUBICIN [Suspect]
     Indication: BREAST CANCER
     Dosage: EVERY 3 WEEKS, 4 CYCLES
     Route: 042
  2. CYCLOPHOSPHAMIDE [Suspect]
     Indication: BREAST CANCER
     Dosage: EVERY 3 WEEKS, 4 CYCLES
     Route: 042
  3. GRANULOCYTE COLONY STIMULATING FACTOR [Concomitant]
     Route: 065

REACTIONS (6)
  - Febrile neutropenia [Unknown]
  - Nausea [Unknown]
  - Neutropenia [Unknown]
  - Leukopenia [Unknown]
  - Lymphopenia [Unknown]
  - Vomiting [Unknown]
